FAERS Safety Report 6688254-2 (Version None)
Quarter: 2010Q2

REPORT INFORMATION
  Report Type: 
  Country: None (occurrence: None)
  Receive Date: 20100420
  Receipt Date: 20100412
  Transmission Date: 20101027
  Serious: Yes (Other)
  Sender: FDA-Public Use
  Company Number: US-SANOFI-AVENTIS-2010SA021563

PATIENT
  Age: 72 Year
  Sex: Female

DRUGS (9)
  1. MULTAQ [Suspect]
     Indication: ATRIAL FIBRILLATION
     Route: 048
     Dates: start: 20090709
  2. MULTAQ [Suspect]
     Route: 048
     Dates: start: 20100409
  3. COUMADIN [Concomitant]
  4. METOPROLOL TARTRATE [Concomitant]
     Dosage: 100MG AM, 50MG PM
     Route: 048
     Dates: end: 20090401
  5. METOPROLOL TARTRATE [Concomitant]
     Dates: start: 20090409
  6. PROTONIX [Concomitant]
  7. ATORVASTATIN [Concomitant]
  8. ASPIRIN [Concomitant]
  9. AVAPRO [Concomitant]
     Indication: BLOOD PRESSURE

REACTIONS (5)
  - ASTHENIA [None]
  - ATRIAL FIBRILLATION [None]
  - DIZZINESS [None]
  - DYSPNOEA [None]
  - NAUSEA [None]
